FAERS Safety Report 14843721 (Version 48)
Quarter: 2022Q3

REPORT INFORMATION
  Report Type: Spontaneous
  Country: IL (occurrence: IL)
  Receive Date: 20180503
  Receipt Date: 20220818
  Transmission Date: 20221027
  Serious: Yes (Other)
  Sender: FDA-Public Use
  Company Number: IL-PFIZER INC-2018177834

PATIENT
  Age: 66 Year
  Sex: Male

DRUGS (11)
  1. ELELYSO [Suspect]
     Active Substance: TALIGLUCERASE ALFA
     Indication: Gaucher^s disease
     Dosage: 3300 IU PER INFUSION (6600 IU FOR A MONTH)
     Route: 042
  2. ELELYSO [Suspect]
     Active Substance: TALIGLUCERASE ALFA
     Dosage: 3300 IU PER INFUSION FOR AN HOUR AND A HALF
     Route: 042
  3. ELELYSO [Suspect]
     Active Substance: TALIGLUCERASE ALFA
     Dosage: 3200/3400 IU PER INFUSION FOR ABOUT AN HOUR AND A HALF
     Route: 042
  4. ELELYSO [Suspect]
     Active Substance: TALIGLUCERASE ALFA
     Dosage: 3400 IU PER INFUSION
     Route: 042
  5. ELELYSO [Suspect]
     Active Substance: TALIGLUCERASE ALFA
     Dosage: 3600/3400 IU PER INFUSION TWICE A MONTH
     Route: 042
  6. ELELYSO [Suspect]
     Active Substance: TALIGLUCERASE ALFA
     Dosage: 3400 IU, TWICE A MONTH
     Route: 042
  7. ELELYSO [Suspect]
     Active Substance: TALIGLUCERASE ALFA
     Dosage: 3400/3600 IU PER INFUSION TWICE A MONTH
     Route: 042
  8. ELELYSO [Suspect]
     Active Substance: TALIGLUCERASE ALFA
     Dosage: 3400/3600 IU PER INFUSION TWICE A MONTH
     Route: 042
     Dates: start: 20210308
  9. ELELYSO [Suspect]
     Active Substance: TALIGLUCERASE ALFA
     Dosage: 3400/3600 IU PER INFUSION TWICE A MONTH
     Route: 042
  10. ELELYSO [Suspect]
     Active Substance: TALIGLUCERASE ALFA
     Dosage: 16/17 VIALS FOR MONTH
     Route: 042
  11. ELELYSO [Suspect]
     Active Substance: TALIGLUCERASE ALFA
     Dosage: 3400 IU TWICE A MONTH
     Route: 042

REACTIONS (12)
  - Cataract [Unknown]
  - Oesophageal carcinoma [Unknown]
  - Procedural haemorrhage [Unknown]
  - Atrial fibrillation [Unknown]
  - Nasopharyngitis [Unknown]
  - Haemoglobin decreased [Unknown]
  - Pain [Unknown]
  - Asthenia [Unknown]
  - Poor venous access [Unknown]
  - Oedema [Recovering/Resolving]
  - COVID-19 [Recovered/Resolved]
  - Inappropriate schedule of product administration [Unknown]
